FAERS Safety Report 15678151 (Version 1)
Quarter: 2018Q4

REPORT INFORMATION
  Report Type: Spontaneous
  Country: US (occurrence: US)
  Receive Date: 20181201
  Receipt Date: 20181201
  Transmission Date: 20190205
  Serious: No
  Sender: FDA-Public Use
  Company Number: US-TEVA-2018-US-974326

PATIENT
  Sex: Female

DRUGS (2)
  1. CARBIDOPA AND LEVODOPA TABLETS ACTAVIS [Suspect]
     Active Substance: CARBIDOPA\LEVODOPA
     Indication: TREMOR
     Dosage: CARBIDOPA 25 MG+ LEVODOPA 100 MG
     Route: 065
  2. CARBIDOPA AND LEVODOPA TABLETS ACTAVIS [Suspect]
     Active Substance: CARBIDOPA\LEVODOPA
     Indication: GAIT DISTURBANCE

REACTIONS (2)
  - Drug ineffective [Unknown]
  - Product substitution issue [Unknown]
